FAERS Safety Report 11076140 (Version 2)
Quarter: 2015Q2

REPORT INFORMATION
  Report Type: Spontaneous
  Country: US (occurrence: US)
  Receive Date: 20150429
  Receipt Date: 20150626
  Transmission Date: 20150821
  Serious: No
  Sender: FDA-Public Use
  Company Number: US-PFIZER INC-2015140117

PATIENT
  Age: 60 Year
  Sex: Male
  Weight: 98 kg

DRUGS (1)
  1. LYRICA [Suspect]
     Active Substance: PREGABALIN
     Indication: PAIN IN EXTREMITY
     Dosage: UNK
     Dates: start: 20150403

REACTIONS (3)
  - Hallucination [Not Recovered/Not Resolved]
  - Mood altered [Not Recovered/Not Resolved]
  - Anger [Not Recovered/Not Resolved]
